FAERS Safety Report 25795048 (Version 1)
Quarter: 2025Q3

REPORT INFORMATION
  Report Type: Spontaneous
  Country: US (occurrence: US)
  Receive Date: 20250912
  Receipt Date: 20250912
  Transmission Date: 20251020
  Serious: No
  Sender: ELI LILLY AND COMPANY
  Company Number: US-ELI_LILLY_AND_COMPANY-US202509010646

PATIENT
  Age: 34 Year
  Sex: Female

DRUGS (1)
  1. VERZENIO [Suspect]
     Active Substance: ABEMACICLIB
     Indication: Breast cancer female
     Dosage: 50 MG, BID, (1 TABLET TWICE DAILY FOR 2 WEEKS, THEN 2 TABLETS TWICE DAILY FOR 2 WEEKS)
     Route: 048
     Dates: start: 20250903

REACTIONS (1)
  - Fatigue [Unknown]
